FAERS Safety Report 8312798-0 (Version None)
Quarter: 2012Q2

REPORT INFORMATION
  Report Type: 
  Country: None (occurrence: None)
  Receive Date: 20120426
  Receipt Date: 20120423
  Transmission Date: 20120825
  Serious: Yes (Other)
  Sender: FDA-Public Use
  Company Number: US-PFIZER INC-2011092339

PATIENT
  Sex: Male

DRUGS (5)
  1. IBUPROFEN [Suspect]
     Dosage: UNK
  2. CELEBREX [Suspect]
     Indication: ARTHRITIS
     Dosage: UNK
     Route: 048
  3. CELEBREX [Suspect]
     Indication: ARTHROPATHY
  4. ACTOS [Concomitant]
     Indication: DIABETES MELLITUS
     Dosage: 40 MG,DAILY
  5. LIPITOR [Concomitant]
     Dosage: UNK

REACTIONS (3)
  - ARTHRALGIA [None]
  - RENAL IMPAIRMENT [None]
  - ARTHROPATHY [None]
